FAERS Safety Report 11517594 (Version 2)
Quarter: 2015Q4

REPORT INFORMATION
  Report Type: Spontaneous
  Country: US (occurrence: US)
  Receive Date: 20150917
  Receipt Date: 20151028
  Transmission Date: 20160304
  Serious: Yes (Hospitalization)
  Sender: FDA-Public Use
  Company Number: US-009507513-1509USA008612

PATIENT
  Sex: Male

DRUGS (1)
  1. ZERBAXA [Suspect]
     Active Substance: CEFTOLOZANE SULFATE\TAZOBACTAM SODIUM
     Indication: MULTIPLE-DRUG RESISTANCE
     Dosage: ZERBAXA VIAL 1.5

REACTIONS (1)
  - Condition aggravated [Unknown]
